FAERS Safety Report 5796680-9 (Version None)
Quarter: 2008Q2

REPORT INFORMATION
  Report Type: 
  Country: None (occurrence: None)
  Receive Date: 20080630
  Receipt Date: 20080630
  Transmission Date: 20081010
  Serious: No
  Sender: FDA-Public Use
  Company Number: None

PATIENT
  Sex: Male
  Weight: 120 kg

DRUGS (2)
  1. CISPLATIN [Suspect]
     Indication: TESTIS CANCER
     Dosage: 1 MG/ML -98 ML/HR- IV
     Route: 042
     Dates: start: 20071106, end: 20080318
  2. CARBOPLATIN [Suspect]
     Indication: STEM CELL TRANSPLANT
     Dosage: 700 MG/M2
     Dates: start: 20080501, end: 20080531

REACTIONS (4)
  - DEAFNESS NEUROSENSORY [None]
  - EAR DISORDER [None]
  - HYPOACUSIS [None]
  - TINNITUS [None]
